FAERS Safety Report 4892289-X (Version None)
Quarter: 2006Q1

REPORT INFORMATION
  Report Type: 
  Country: None (occurrence: None)
  Receive Date: 20060125
  Receipt Date: 20060125
  Transmission Date: 20060701
  Serious: Yes (Hospitalization)
  Sender: FDA-Public Use
  Company Number: None

PATIENT
  Age: 52 Year
  Sex: Male

DRUGS (2)
  1. METHOTREXATE [Suspect]
     Indication: BURKITT'S LYMPHOMA
     Dosage: 12376 MG CONT INFUSION
     Route: 042
     Dates: start: 20051108, end: 20051109
  2. METHOTREXATE [Suspect]
     Indication: NON-HODGKIN'S LYMPHOMA
     Dosage: 12376 MG CONT INFUSION
     Route: 042
     Dates: start: 20051108, end: 20051109

REACTIONS (1)
  - RENAL FAILURE ACUTE [None]
